FAERS Safety Report 14475261 (Version 1)
Quarter: 2018Q1

REPORT INFORMATION
  Report Type: Spontaneous
  Country: AU (occurrence: AU)
  Receive Date: 20180201
  Receipt Date: 20180201
  Transmission Date: 20180509
  Serious: Yes (Death, Hospitalization, Other)
  Sender: FDA-Public Use
  Company Number: AU-MYLANLABS-2018M1007114

PATIENT
  Age: 81 Year
  Sex: Female

DRUGS (2)
  1. HEPARIN [Suspect]
     Active Substance: HEPARIN SODIUM
     Indication: ANTICOAGULANT THERAPY
     Dosage: ROUTE OF ADMINISTRATION: INFUSION
     Route: 050
  2. CLEXANE [Suspect]
     Active Substance: ENOXAPARIN SODIUM
     Indication: ANTICOAGULANT THERAPY
     Dosage: 1 MG/KG, UNK
     Route: 065

REACTIONS (4)
  - Pelvic haematoma [Fatal]
  - Haemoglobin decreased [Fatal]
  - Arterial haemorrhage [Fatal]
  - Hypotension [Fatal]
